FAERS Safety Report 7998714-X (Version None)
Quarter: 2011Q4

REPORT INFORMATION
  Report Type: 
  Country: None (occurrence: None)
  Receive Date: 20111221
  Receipt Date: 20111212
  Transmission Date: 20120403
  Serious: Yes (Other)
  Sender: FDA-Public Use
  Company Number: US-ABBOTT-11P-163-0883460-00

PATIENT
  Sex: Female
  Weight: 68.1 kg

DRUGS (7)
  1. FORTEO [Suspect]
     Indication: OSTEOPOROSIS
     Dates: start: 20110101, end: 20110901
  2. ADVAIR DISKUS 100/50 [Concomitant]
     Indication: CHRONIC OBSTRUCTIVE PULMONARY DISEASE
  3. FUROSEMIDE [Concomitant]
     Indication: PRODUCT USED FOR UNKNOWN INDICATION
  4. SYNTHROID [Suspect]
     Indication: HYPOTHYROIDISM
  5. IPRATROPIUM BROMIDE AND ALBUTEROL SULFATE [Suspect]
     Indication: BRONCHOSPASM
     Dosage: .5MG/3MG VIA NEBULIZER
     Route: 055
     Dates: start: 20091001, end: 20110901
  6. LOSARTAN POTASSIUM [Concomitant]
     Indication: PRODUCT USED FOR UNKNOWN INDICATION
  7. POTASSIUM [Concomitant]
     Indication: PRODUCT USED FOR UNKNOWN INDICATION

REACTIONS (6)
  - OSTEOPOROSIS [None]
  - ALOPECIA [None]
  - TOOTH LOSS [None]
  - GINGIVAL DISORDER [None]
  - BACK PAIN [None]
  - HEART RATE DECREASED [None]
